FAERS Safety Report 4832638-1 (Version None)
Quarter: 2005Q4

REPORT INFORMATION
  Report Type: 
  Country: None (occurrence: None)
  Receive Date: 20051121
  Receipt Date: 20051116
  Transmission Date: 20060501
  Serious: Yes (Hospitalization)
  Sender: FDA-Public Use
  Company Number: US-GLAXOSMITHKLINE-A0582601A

PATIENT
  Age: 57 Year
  Sex: Male

DRUGS (2)
  1. BEXXAR [Suspect]
     Indication: NON-HODGKIN'S LYMPHOMA
     Route: 042
     Dates: start: 20050623
  2. ZOLOFT [Concomitant]

REACTIONS (5)
  - LYMPHOMA [None]
  - PLATELET COUNT DECREASED [None]
  - SPLENOMEGALY [None]
  - WEIGHT DECREASED [None]
  - WHITE BLOOD CELL COUNT INCREASED [None]
